FAERS Safety Report 9143524 (Version 1)
Quarter: 2013Q1

REPORT INFORMATION
  Report Type: Spontaneous
  Country: US (occurrence: US)
  Receive Date: 20130306
  Receipt Date: 20130306
  Transmission Date: 20140127
  Serious: Yes (Other)
  Sender: FDA-Public Use
  Company Number: US-ENDO PHARMACEUTICALS INC.-HCDA20130061

PATIENT
  Sex: Female
  Weight: 81.72 kg

DRUGS (3)
  1. HYDROCODONE/ACETAMINOPHEN [Suspect]
     Indication: BLADDER PAIN
     Dosage: 5/325 MG
     Route: 048
     Dates: start: 2011, end: 201212
  2. HYDROCODONE/ACETAMINOPHEN [Suspect]
     Indication: RENAL PAIN
  3. HYDROCODONE/ACETAMINOPHEN [Suspect]
     Indication: CYSTITIS INTERSTITIAL

REACTIONS (5)
  - Renal cancer [Unknown]
  - Hernia [Unknown]
  - Abdominal pain [Not Recovered/Not Resolved]
  - Nausea [Not Recovered/Not Resolved]
  - Vomiting [Not Recovered/Not Resolved]
